FAERS Safety Report 4900385-3 (Version None)
Quarter: 2006Q1

REPORT INFORMATION
  Report Type: 
  Country: None (occurrence: None)
  Receive Date: 20060203
  Receipt Date: 20060124
  Transmission Date: 20060701
  Serious: Yes (Hospitalization)
  Sender: FDA-Public Use
  Company Number: US-JNJFOC-20060105305

PATIENT
  Age: 18 Month
  Sex: Female

DRUGS (5)
  1. ACETAMINOPHEN [Suspect]
  2. ACETAMINOPHEN [Suspect]
     Indication: DRUG USE FOR UNKNOWN INDICATION
  3. RIFAMPIN [Interacting]
     Indication: TUBERCULOSIS
  4. ISONIAZID [Interacting]
     Indication: TUBERCULOSIS
  5. CLARITHROMYCIN [Concomitant]

REACTIONS (5)
  - ACCIDENTAL DRUG INTAKE BY CHILD [None]
  - ACCIDENTAL OVERDOSE [None]
  - DRUG INTERACTION [None]
  - HEPATOTOXICITY [None]
  - METABOLIC ACIDOSIS [None]
